FAERS Safety Report 4535913-3 (Version None)
Quarter: 2004Q4

REPORT INFORMATION
  Report Type: 
  Country: None (occurrence: None)
  Receive Date: 20041222
  Receipt Date: 20041222
  Transmission Date: 20050328
  Serious: Yes (Other)
  Sender: FDA-Public Use
  Company Number: None

PATIENT
  Age: 18 Year
  Sex: Male
  Weight: 63.05 kg

DRUGS (1)
  1. DEMEROL [Suspect]
     Indication: INGUINAL HERNIA
     Dosage: 20 MG IV
     Route: 042
     Dates: start: 20041210

REACTIONS (2)
  - RASH [None]
  - URTICARIA [None]
